FAERS Safety Report 12760494 (Version 3)
Quarter: 2016Q4

REPORT INFORMATION
  Report Type: Spontaneous
  Country: US (occurrence: US)
  Receive Date: 20160919
  Receipt Date: 20161002
  Transmission Date: 20170207
  Serious: No
  Sender: FDA-Public Use
  Company Number: US-CELGENEUS-USA-2016092315

PATIENT
  Age: 53 Year
  Sex: Male
  Weight: 154.2 kg

DRUGS (1)
  1. REVLIMID [Suspect]
     Active Substance: LENALIDOMIDE
     Indication: MYELODYSPLASTIC SYNDROME
     Dosage: 5 MILLIGRAM
     Route: 048
     Dates: start: 20160906, end: 20160926

REACTIONS (7)
  - Pain [Unknown]
  - Fluid retention [Unknown]
  - Pruritus [Unknown]
  - Dysgeusia [Unknown]
  - Blood pressure decreased [Unknown]
  - Skin disorder [Unknown]
  - Rash generalised [Recovering/Resolving]

NARRATIVE: CASE EVENT DATE: 20160908
